FAERS Safety Report 5731511-4 (Version None)
Quarter: 2008Q2

REPORT INFORMATION
  Report Type: 
  Country: None (occurrence: None)
  Receive Date: 20080508
  Receipt Date: 20080501
  Transmission Date: 20081010
  Serious: Yes (Disabling, Other)
  Sender: FDA-Public Use
  Company Number: PHEH2008US03434

PATIENT
  Age: 58 Year
  Sex: Male
  Weight: 81.632 kg

DRUGS (9)
  1. SUTENT [Concomitant]
     Indication: RENAL CELL CARCINOMA
     Dosage: 37.5MG  QD
     Dates: start: 20070227
  2. ZOMETA [Suspect]
     Indication: METASTASES TO BONE
     Dosage: 4 MG, QUARTERLY
     Route: 042
     Dates: start: 20070226, end: 20080110
  3. CYMBALTA [Concomitant]
  4. MIRAX [Concomitant]
     Dosage: 75MG QD
  5. AMLODIPINE [Concomitant]
     Dosage: 5MG QD
  6. PREVACID [Concomitant]
     Indication: GASTROOESOPHAGEAL REFLUX DISEASE
     Dosage: 30MG QD
  7. METANX [Concomitant]
  8. PERCOCET [Concomitant]
     Dosage: 10/325MG PRN PAIN
  9. VIAGRA [Suspect]

REACTIONS (6)
  - BONE DISORDER [None]
  - DENTAL CARIES [None]
  - MASTICATION DISORDER [None]
  - OSTEONECROSIS [None]
  - PAIN [None]
  - TOOTH DISORDER [None]
